FAERS Safety Report 8723816 (Version 2)
Quarter: 2012Q4

REPORT INFORMATION
  Report Type: 
  Country: AT (occurrence: AT)
  Receive Date: 20120815
  Receipt Date: 20120827
  Transmission Date: 20130627
  Serious: Yes (Hospitalization, Other)
  Sender: FDA-Public Use
  Company Number: AT-ELI_LILLY_AND_COMPANY-AT201208003090

PATIENT
  Age: 30 Year
  Sex: Female

DRUGS (5)
  1. DULOXETINE HYDROCHLORIDE [Suspect]
     Indication: DEPRESSION
     Dosage: 60 mg, bid
     Route: 048
  2. DOMINAL [Concomitant]
     Dosage: 160 mg, qd
  3. TEMESTA [Concomitant]
     Dosage: 2.5 mg, tid
  4. AKINETON                                /AUS/ [Concomitant]
     Dosage: 4 mg, qd
  5. PANTOLOC                           /01263204/ [Concomitant]
     Dosage: 40 mg, qd

REACTIONS (3)
  - Electrolyte imbalance [Unknown]
  - Vomiting [Unknown]
  - Urinary retention [Unknown]
